FAERS Safety Report 7555470-7 (Version None)
Quarter: 2011Q2

REPORT INFORMATION
  Report Type: 
  Country: None (occurrence: None)
  Receive Date: 20110617
  Receipt Date: 20110610
  Transmission Date: 20111010
  Serious: Yes (Hospitalization)
  Sender: FDA-Public Use
  Company Number: IT-PURDUE-GBR-2010-0007463

PATIENT
  Sex: Male

DRUGS (7)
  1. LANSOX [Concomitant]
     Dosage: 30 MG, UNK
  2. HALCION [Concomitant]
     Dosage: 125 MCG, UNK
     Route: 048
  3. OXYCONTIN [Suspect]
     Indication: SPINAL FRACTURE
     Dosage: 2 X 5 MG
     Route: 048
     Dates: start: 20101119, end: 20101124
  4. PREDNISONE [Concomitant]
     Dosage: 25 MG, UNK
     Route: 048
  5. AMIODARONE HCL [Concomitant]
     Dosage: 200 MG, UNK
     Route: 048
  6. VASELINE                           /00473501/ [Concomitant]
  7. TRIATEC                            /00885601/ [Concomitant]
     Dosage: 5 MG, UNK
     Route: 048

REACTIONS (6)
  - CONFUSIONAL STATE [None]
  - RENAL FAILURE [None]
  - VOMITING [None]
  - NAUSEA [None]
  - DEHYDRATION [None]
  - DECREASED APPETITE [None]
